FAERS Safety Report 9735664 (Version 1)
Quarter: 2013Q4

REPORT INFORMATION
  Report Type: Spontaneous
  Country: US (occurrence: None)
  Receive Date: 20131204
  Receipt Date: 20131204
  Transmission Date: 20140711
  Serious: Yes (Hospitalization)
  Sender: FDA-Public Use
  Company Number: UTC-038253

PATIENT
  Age: 77 Year
  Sex: Female
  Weight: 68.63 kg

DRUGS (4)
  1. TYVASO [Suspect]
     Indication: ESSENTIAL HYPERTENSION
     Dosage: 18-54 MCGS (4 IN 1 D) INHALATION
     Route: 055
     Dates: start: 20130903, end: 2013
  2. COUMADIN (WARFARIN SODIUM) (UNKNOWN) [Concomitant]
  3. REVATIO (SILDENAFIL CITRATE) (TABELT) [Concomitant]
  4. TRACLEER (BOSENTAN) (TABLET) [Concomitant]

REACTIONS (1)
  - Alveolitis allergic [None]
